FAERS Safety Report 8226685-X (Version None)
Quarter: 2012Q1

REPORT INFORMATION
  Report Type: 
  Country: None (occurrence: None)
  Receive Date: 20120322
  Receipt Date: 20120315
  Transmission Date: 20120608
  Serious: Yes (Hospitalization, Other)
  Sender: FDA-Public Use
  Company Number: US-BAYER-2011-039902

PATIENT
  Age: 20 Year
  Sex: Female
  Weight: 108 kg

DRUGS (3)
  1. YAZ [Suspect]
     Indication: PRODUCT USED FOR UNKNOWN INDICATION
     Dosage: UNK
     Dates: start: 20090201, end: 20091101
  2. LORTAB [Concomitant]
     Dosage: 7.5 MG, Q4HR, AS NEEDED
     Route: 048
     Dates: start: 20090412
  3. MOTRIN [Concomitant]
     Dosage: 400 MG, QID
     Route: 048
     Dates: start: 20090412

REACTIONS (9)
  - GALLBLADDER DISORDER [None]
  - ABDOMINAL PAIN UPPER [None]
  - FAT INTOLERANCE [None]
  - NAUSEA [None]
  - VOMITING [None]
  - FEAR [None]
  - CHOLELITHIASIS [None]
  - PAIN [None]
  - INJURY [None]
